FAERS Safety Report 11789218 (Version 1)
Quarter: 2015Q4

REPORT INFORMATION
  Report Type: Report from Study
  Country: JP (occurrence: JP)
  Receive Date: 20151201
  Receipt Date: 20151201
  Transmission Date: 20160305
  Serious: Yes (Death, Hospitalization)
  Sender: FDA-Public Use
  Company Number: JP-VIFOR (INTERNATIONAL) INC.-VIT-2015-03289

PATIENT
  Age: 88 Year
  Sex: Male
  Weight: 33.9 kg

DRUGS (7)
  1. MIRCERA [Suspect]
     Active Substance: METHOXY POLYETHYLENE GLYCOL-EPOETIN BETA
     Indication: NEPHROGENIC ANAEMIA
     Route: 058
     Dates: start: 20121115, end: 20130502
  2. ALDACTONE A [Concomitant]
     Active Substance: SPIRONOLACTONE
     Indication: RENAL FAILURE
     Route: 048
     Dates: start: 20130517
  3. NATRIX [Concomitant]
     Active Substance: INDAPAMIDE
     Indication: RENAL FAILURE
     Route: 048
     Dates: end: 20130517
  4. FEBURIC [Concomitant]
     Active Substance: FEBUXOSTAT
     Route: 048
     Dates: start: 20130521
  5. FERROMIA [Concomitant]
     Active Substance: FERROUS CITRATE
     Indication: RENAL FAILURE
     Route: 048
     Dates: end: 20130517
  6. JUVELA N [Concomitant]
     Active Substance: TOCOPHERYL NICOTINATE, D-.ALPHA.
     Route: 048
     Dates: start: 20121213, end: 20130521
  7. LASIX [Concomitant]
     Active Substance: FUROSEMIDE
     Indication: RENAL FAILURE
     Route: 048
     Dates: start: 20130521

REACTIONS (9)
  - Decreased appetite [Fatal]
  - Atrial fibrillation [Unknown]
  - Sepsis [Fatal]
  - Bradycardia [Unknown]
  - Chronic kidney disease [Unknown]
  - Bundle branch block right [Unknown]
  - Azotaemia [Fatal]
  - Dehydration [Fatal]
  - Anaemia [Not Recovered/Not Resolved]

NARRATIVE: CASE EVENT DATE: 2013
